FAERS Safety Report 11541626 (Version 1)
Quarter: 2015Q3

REPORT INFORMATION
  Report Type: Spontaneous
  Country: US (occurrence: US)
  Receive Date: 20150923
  Receipt Date: 20150923
  Transmission Date: 20151125
  Serious: No
  Sender: FDA-Public Use
  Company Number: US-WATSON-2014-21145

PATIENT

DRUGS (1)
  1. TESTOSTERONE CYPIONATE (WATSON LABORATORIES) [Suspect]
     Active Substance: TESTOSTERONE CYPIONATE
     Indication: BLOOD TESTOSTERONE DECREASED
     Dosage: 1.5 ML EVERY 3 WEEKS
     Route: 030
     Dates: start: 20140801

REACTIONS (2)
  - Hyperhidrosis [Not Recovered/Not Resolved]
  - Drug ineffective [Unknown]
